FAERS Safety Report 5088510-8 (Version None)
Quarter: 2006Q3

REPORT INFORMATION
  Report Type: 
  Country: None (occurrence: None)
  Receive Date: 20060822
  Receipt Date: 20060808
  Transmission Date: 20061208
  Serious: Yes (Hospitalization, Other)
  Sender: FDA-Public Use
  Company Number: 2006AL002248

PATIENT
  Sex: Female

DRUGS (5)
  1. CITALOPRAM HYDROBROMIDE [Suspect]
     Indication: DEPRESSION
     Dosage: 20 MG, QD, PO
     Route: 048
     Dates: start: 20060508, end: 20060510
  2. BENDROFLUMETHIAZIDE [Concomitant]
  3. DIHYDROCODEINE/PARACETAMOL [Concomitant]
  4. LEVOTHYROXINE SODIUM [Concomitant]
  5. ZOPICLONE [Concomitant]

REACTIONS (4)
  - HYPOKALAEMIA [None]
  - HYPONATRAEMIA [None]
  - NAUSEA [None]
  - VOMITING [None]
